FAERS Safety Report 17782219 (Version 1)
Quarter: 2020Q2

REPORT INFORMATION
  Report Type: Spontaneous
  Country: US (occurrence: US)
  Receive Date: 20200514
  Receipt Date: 20200514
  Transmission Date: 20200714
  Serious: Yes (Hospitalization)
  Sender: FDA-Public Use
  Company Number: None

PATIENT
  Age: 70 Year
  Sex: Male
  Weight: 106 kg

DRUGS (7)
  1. GEMCITABINE. [Suspect]
     Active Substance: GEMCITABINE
     Indication: PANCREATIC CARCINOMA METASTATIC
     Dosage: ?          OTHER FREQUENCY:3 WK ON, 1 WK OFF;?
     Route: 042
     Dates: start: 20200302, end: 20200410
  2. VESICARE [Concomitant]
     Active Substance: SOLIFENACIN SUCCINATE
  3. MIDODRINE [Concomitant]
     Active Substance: MIDODRINE
  4. DIGOXIN. [Concomitant]
     Active Substance: DIGOXIN
  5. ABRAXANE [Suspect]
     Active Substance: PACLITAXEL
     Indication: PANCREATIC CARCINOMA METASTATIC
     Dosage: ?          OTHER FREQUENCY:Q28 DAYS;?
     Route: 042
     Dates: start: 20200302, end: 20200410
  6. FLOMAX [Concomitant]
     Active Substance: TAMSULOSIN HYDROCHLORIDE
  7. XARELTO [Concomitant]
     Active Substance: RIVAROXABAN

REACTIONS (2)
  - Cardiac failure congestive [None]
  - Pneumonitis [None]

NARRATIVE: CASE EVENT DATE: 20200410
